FAERS Safety Report 6215234-3 (Version None)
Quarter: 2009Q2

REPORT INFORMATION
  Report Type: 
  Country: None (occurrence: None)
  Receive Date: 20090604
  Receipt Date: 20090603
  Transmission Date: 20091009
  Serious: Yes (Disabling, Other)
  Sender: FDA-Public Use
  Company Number: US-PFIZER INC-2008023746

PATIENT
  Age: 64 Year
  Sex: Female

DRUGS (1)
  1. CELEBREX [Suspect]
     Indication: ARTHRALGIA
     Dosage: UNK
     Route: 048
     Dates: start: 20070401, end: 20070901

REACTIONS (3)
  - BONE GRAFT LYSIS [None]
  - DISLOCATION OF JOINT PROSTHESIS [None]
  - SPINAL DISORDER [None]
